FAERS Safety Report 26150933 (Version 1)
Quarter: 2025Q4

REPORT INFORMATION
  Report Type: Other
  Country: JP (occurrence: JP)
  Receive Date: 20251212
  Receipt Date: 20251212
  Transmission Date: 20260118
  Serious: Yes (Hospitalization)
  Sender: ANI
  Company Number: JP-ANIPHARMA-035516

PATIENT
  Age: 63 Year
  Sex: Female

DRUGS (6)
  1. CYCLOPHOSPHAMIDE [Suspect]
     Active Substance: CYCLOPHOSPHAMIDE
     Indication: High-grade B-cell lymphoma
     Dosage: HYPER-CVAD/MA REGIMEN
  2. VINCRISTINE [Concomitant]
     Active Substance: VINCRISTINE
     Indication: High-grade B-cell lymphoma
     Dosage: HYPER-CVAD/MA REGIMEN
  3. DOXORUBICIN [Concomitant]
     Active Substance: DOXORUBICIN
     Indication: High-grade B-cell lymphoma
     Dosage: HYPER-CVAD/MA REGIMEN
  4. DEXAMETHASONE [Concomitant]
     Active Substance: DEXAMETHASONE
     Indication: High-grade B-cell lymphoma
     Dosage: HYPER-CVAD/MA REGIMEN
  5. METHOTREXATE [Concomitant]
     Active Substance: METHOTREXATE
     Indication: High-grade B-cell lymphoma
     Dosage: HYPER-CVAD/MA REGIMEN
  6. CYTARABINE [Concomitant]
     Active Substance: CYTARABINE
     Indication: High-grade B-cell lymphoma
     Dosage: HYPER-CVAD/MA REGIMEN

REACTIONS (1)
  - Disease recurrence [Unknown]
